FAERS Safety Report 9274443 (Version 1)
Quarter: 2013Q2

REPORT INFORMATION
  Report Type: Report from Study
  Country: BR (occurrence: BR)
  Receive Date: 20130506
  Receipt Date: 20130506
  Transmission Date: 20140414
  Serious: Yes (Hospitalization, Other)
  Sender: FDA-Public Use
  Company Number: BR-AMGEN-BRACT2011066526

PATIENT
  Age: 71 Year
  Sex: Female
  Weight: 68 kg

DRUGS (14)
  1. ETANERCEPT [Suspect]
     Dosage: 50 MG, ONCE WEEKLY
     Route: 058
     Dates: start: 201112, end: 201204
  2. ETANERCEPT [Suspect]
     Dosage: 50 MG, EVERY 15 DAYS
     Dates: start: 2012
  3. PURAN T4 [Concomitant]
     Indication: THYROID DISORDER
     Dosage: UNK
  4. OMEPRAZOL                          /00661201/ [Concomitant]
     Indication: GASTRIC DISORDER
     Dosage: UNK
  5. PARACETAMOL [Concomitant]
     Dosage: UNK
  6. CALCIUM [Concomitant]
     Dosage: UNK
  7. VITAMIN D /00107901/ [Concomitant]
     Dosage: UNK
  8. METHOTREXATE [Concomitant]
     Indication: RHEUMATOID ARTHRITIS
     Dosage: UNK, WEEKLY
  9. FOLIC ACID [Concomitant]
     Dosage: UNK
  10. CORTISONE [Concomitant]
     Dosage: UNK
  11. PREDNISONE [Concomitant]
     Indication: RHEUMATOID ARTHRITIS
     Dosage: UNK
  12. OSTEOFORM                          /01220302/ [Concomitant]
     Indication: BONE DISORDER
     Dosage: UNK
  13. ETANERCEPT [Suspect]
     Indication: RHEUMATOID ARTHRITIS
     Dosage: 50 MG, WEEKLY
     Route: 058
     Dates: start: 201012, end: 201111
  14. ETANERCEPT [Suspect]
     Dosage: 50 MG, WEEKLY
     Route: 058
     Dates: start: 201107

REACTIONS (11)
  - Pulmonary fibrosis [Unknown]
  - Drug ineffective [Unknown]
  - Off label use [Unknown]
  - Pharyngitis [Unknown]
  - Injection site pain [Unknown]
  - Arthritis [Not Recovered/Not Resolved]
  - Body height decreased [Not Recovered/Not Resolved]
  - Wrong technique in drug usage process [Unknown]
  - Glucose tolerance impaired [Unknown]
  - Osteoporosis [Unknown]
  - Arthralgia [Unknown]
